FAERS Safety Report 24440773 (Version 2)
Quarter: 2024Q4

REPORT INFORMATION
  Report Type: Report from Study
  Country: JP (occurrence: JP)
  Receive Date: 20241016
  Receipt Date: 20241017
  Transmission Date: 20250115
  Serious: No
  Sender: ROCHE
  Company Number: JP-CHUGAI-2021004651

PATIENT
  Age: 7 Year
  Sex: Male
  Weight: 21.6 kg

DRUGS (11)
  1. HEMLIBRA [Suspect]
     Active Substance: EMICIZUMAB-KXWH
     Indication: Haemophilia A with anti factor VIII
     Route: 058
     Dates: start: 20201207
  2. HEMLIBRA [Suspect]
     Active Substance: EMICIZUMAB-KXWH
     Dosage: 60 MILLIGRAM
     Route: 058
     Dates: start: 20210903, end: 20210903
  3. HEMLIBRA [Suspect]
     Active Substance: EMICIZUMAB-KXWH
     Dosage: 60 MILLIGRAM
     Route: 058
     Dates: start: 20210916, end: 20210916
  4. HEMLIBRA [Suspect]
     Active Substance: EMICIZUMAB-KXWH
     Dosage: 60 MILLIGRAM
     Route: 058
     Dates: start: 20211001, end: 20211001
  5. HEMLIBRA [Suspect]
     Active Substance: EMICIZUMAB-KXWH
     Dosage: 60 MILLIGRAM
     Route: 058
     Dates: start: 20211014, end: 20211014
  6. HEMLIBRA [Suspect]
     Active Substance: EMICIZUMAB-KXWH
     Dosage: 60 MILLIGRAM
     Route: 058
     Dates: start: 20211028, end: 20211028
  7. HEMLIBRA [Suspect]
     Active Substance: EMICIZUMAB-KXWH
     Dosage: 60 MILLIGRAM
     Route: 058
     Dates: start: 20211111, end: 20211111
  8. HEMLIBRA [Suspect]
     Active Substance: EMICIZUMAB-KXWH
     Route: 058
     Dates: start: 20211123, end: 20211123
  9. HEMLIBRA [Suspect]
     Active Substance: EMICIZUMAB-KXWH
     Route: 058
     Dates: start: 20211209, end: 20211209
  10. HEMLIBRA [Suspect]
     Active Substance: EMICIZUMAB-KXWH
     Route: 058
     Dates: start: 20211222, end: 20211222
  11. ELOCTATE [Concomitant]
     Active Substance: EFMOROCTOCOG ALFA
     Dosage: 49 INTERNATIONAL UNIT/KILOGRAM, BIW
     Route: 065

REACTIONS (5)
  - Anti factor VIII antibody positive [Unknown]
  - Skin laceration [Recovered/Resolved]
  - Rash [Recovered/Resolved]
  - Upper respiratory tract inflammation [Recovered/Resolved]
  - Off label use [Unknown]

NARRATIVE: CASE EVENT DATE: 20210903
